FAERS Safety Report 10250694 (Version 2)
Quarter: 2015Q1

REPORT INFORMATION
  Report Type: Report from Study
  Country: US (occurrence: US)
  Receive Date: 20140620
  Receipt Date: 20150202
  Transmission Date: 20150720
  Serious: Yes (Other)
  Sender: FDA-Public Use
  Company Number: US-ACTELION-A-US2014-100553

PATIENT
  Age: 69 Year
  Sex: Female

DRUGS (2)
  1. COUMADIN [Concomitant]
     Active Substance: WARFARIN SODIUM
  2. TRACLEER [Suspect]
     Active Substance: BOSENTAN\BOSENTAN MONOHYDRATE
     Indication: COR PULMONALE CHRONIC
     Dosage: UNK
     Route: 048

REACTIONS (7)
  - Breast cancer [Unknown]
  - Dizziness [Unknown]
  - Arteriovenous fistula operation [Unknown]
  - Dialysis [Unknown]
  - Asthenia [Unknown]
  - Cyst removal [Unknown]
  - Balance disorder [Unknown]
